FAERS Safety Report 8875835 (Version 2)
Quarter: 2013Q3

REPORT INFORMATION
  Report Type: Spontaneous
  Country: JP (occurrence: JP)
  Receive Date: 20121030
  Receipt Date: 20130918
  Transmission Date: 20140515
  Serious: Yes (Other)
  Sender: FDA-Public Use
  Company Number: JP-GLAXOSMITHKLINE-B0839562A

PATIENT
  Sex: Female

DRUGS (1)
  1. IMIGRAN STATDOSE [Suspect]
     Indication: PRODUCT USED FOR UNKNOWN INDICATION
     Route: 058

REACTIONS (4)
  - Device malfunction [Unknown]
  - Haemorrhage subcutaneous [Recovered/Resolved]
  - Device failure [Unknown]
  - Product quality issue [Unknown]
